FAERS Safety Report 10374144 (Version 2)
Quarter: 2015Q2

REPORT INFORMATION
  Report Type: Report from Study
  Country: CA (occurrence: CA)
  Receive Date: 20140811
  Receipt Date: 20150626
  Transmission Date: 20150821
  Serious: Yes (Other)
  Sender: FDA-Public Use
  Company Number: CA-UCBSA-2014008159

PATIENT
  Age: 81 Year
  Sex: Female
  Weight: 60 kg

DRUGS (15)
  1. CALCIUM [Concomitant]
     Active Substance: CALCIUM
     Dosage: 500 MG, ONCE DAILY (QD)
  2. CERTOLIZUMAB PEGOL RA [Suspect]
     Active Substance: CERTOLIZUMAB PEGOL
     Dosage: 200 MG, EV 2 WEEKS(QOW)
     Route: 058
     Dates: start: 20120927
  3. TOLOXIN [Concomitant]
     Active Substance: DIGOXIN
     Dosage: 00625 MG, ONCE DAILY (QD)
  4. FORTEO [Concomitant]
     Active Substance: TERIPARATIDE
     Indication: OSTEOPOROSIS
     Dosage: UNK, ONCE DAILY (QD) (DGT DOSE INJECTIONS)
  5. LASIX [Concomitant]
     Active Substance: FUROSEMIDE
     Dosage: 20 MG, ONCE DAILY (QD)
  6. RABEPRAZOLE [Concomitant]
     Active Substance: RABEPRAZOLE
     Indication: GASTRIC ULCER
     Dosage: 20 MG, ONCE DAILY (QD) (AT AM)
  7. DILTIAZEM [Concomitant]
     Active Substance: DILTIAZEM
     Dosage: 360 MG, ONCE DAILY (QD) (AT BED TIME)
  8. RAMIPRIL. [Concomitant]
     Active Substance: RAMIPRIL
     Dosage: 25 MG, ONCE DAILY (QD)
  9. NABUMETONE. [Concomitant]
     Active Substance: NABUMETONE
     Dosage: 500 MG, 3X/DAY (TID)
  10. CERTOLIZUMAB PEGOL RA [Suspect]
     Active Substance: CERTOLIZUMAB PEGOL
     Indication: RHEUMATOID ARTHRITIS
     Dosage: 400 MG, EV 2 WEEKS(QOW) (WEEK 0-2-4)
     Route: 058
     Dates: start: 20120816, end: 20120913
  11. PREDNISONE. [Concomitant]
     Active Substance: PREDNISONE
     Indication: RHEUMATOID ARTHRITIS
     Dosage: 15 MG, ONCE DAILY (QD)
     Route: 048
  12. VITAMIN D [Concomitant]
     Active Substance: CHOLECALCIFEROL
     Dosage: 2000 MG, ONCE DAILY (QD)
  13. WARFARIN [Concomitant]
     Active Substance: WARFARIN
     Dosage: 1/2 TAB, ONCE DAILY (QD)
  14. TYLENOL [Concomitant]
     Active Substance: ACETAMINOPHEN
     Dosage: 2 TABS TID TO QID
  15. VITALUX [Concomitant]
     Active Substance: MINERALS\VITAMINS
     Indication: EYE DISORDER

REACTIONS (1)
  - Herpes zoster [Recovering/Resolving]

NARRATIVE: CASE EVENT DATE: 201405
